FAERS Safety Report 22368987 (Version 1)
Quarter: 2023Q2

REPORT INFORMATION
  Report Type: Report from Study
  Country: US (occurrence: US)
  Receive Date: 20230525
  Receipt Date: 20230525
  Transmission Date: 20230721
  Serious: Yes (Death, Other)
  Sender: FDA-Public Use
  Company Number: US-BAUSCH-BL-2020-019198

PATIENT
  Age: 73 Year
  Sex: Female

DRUGS (2)
  1. XIFAXAN [Suspect]
     Active Substance: RIFAXIMIN
     Indication: Product used for unknown indication
     Route: 048
  2. LACTULOSE [Suspect]
     Active Substance: LACTULOSE
     Indication: Product used for unknown indication
     Route: 065

REACTIONS (9)
  - Hepatic failure [Fatal]
  - Cirrhosis alcoholic [Unknown]
  - Renal impairment [Unknown]
  - Encephalopathy [Unknown]
  - Portal hypertension [Unknown]
  - Ascites [Unknown]
  - Dehydration [Unknown]
  - Diarrhoea [Unknown]
  - Inability to afford medication [Unknown]
